FAERS Safety Report 10879944 (Version 12)
Quarter: 2016Q2

REPORT INFORMATION
  Report Type: Spontaneous
  Country: US (occurrence: US)
  Receive Date: 20150302
  Receipt Date: 20160425
  Transmission Date: 20160815
  Serious: Yes (Hospitalization, Other)
  Sender: FDA-Public Use
  Company Number: US-PFIZER INC-2015068714

PATIENT
  Age: 75 Year
  Sex: Female
  Weight: 83.45 kg

DRUGS (18)
  1. PAXIL [Concomitant]
     Active Substance: PAROXETINE HYDROCHLORIDE
     Dosage: UNK
     Dates: start: 2007
  2. LISINOPRIL. [Concomitant]
     Active Substance: LISINOPRIL
     Indication: BLOOD PRESSURE MEASUREMENT
     Dosage: 20 MG, UNK
     Dates: start: 2000
  3. HCTZ [Concomitant]
     Active Substance: HYDROCHLOROTHIAZIDE
     Indication: BLOOD PRESSURE INCREASED
     Dosage: 25 MG, UNK
     Dates: start: 2000
  4. LOMOTIL [Concomitant]
     Active Substance: ATROPINE SULFATE\DIPHENOXYLATE HYDROCHLORIDE
     Dosage: UNK
     Dates: start: 2010
  5. GAS-X [Concomitant]
     Active Substance: DIMETHICONE
     Dosage: UNK
  6. MACROBID [Concomitant]
     Active Substance: NITROFURANTOIN\NITROFURANTOIN MONOHYDRATE
     Dosage: UNK
     Dates: end: 20150925
  7. QUESTRAN LITE [Concomitant]
     Dosage: UNK
  8. PLAVIX [Concomitant]
     Active Substance: CLOPIDOGREL BISULFATE
     Indication: CORONARY ARTERIAL STENT INSERTION
     Dosage: 75 MG, 1X/DAY
     Dates: start: 2007
  9. SUTENT [Suspect]
     Active Substance: SUNITINIB MALATE
     Dosage: 25 MG, 4 WEEKS OFF 2 WEEKS/28 DAYS ON/14 DAYS OFF)
     Dates: end: 20160215
  10. PAXIL [Concomitant]
     Active Substance: PAROXETINE HYDROCHLORIDE
     Indication: DEPRESSION
     Dosage: 40 MG, 1X/DAY (1 AT NIGHT)
     Dates: start: 2000
  11. VITAMIN D3 [Concomitant]
     Active Substance: CHOLECALCIFEROL
     Dosage: UNK
  12. SUTENT [Suspect]
     Active Substance: SUNITINIB MALATE
     Indication: BRONCHIOLOALVEOLAR CARCINOMA
     Dosage: 25 MG, 4 WEEKS OFF 2 WEEKS/28 DAYS ON/14 DAYS OFF)
     Dates: start: 20150206
  13. SUTENT [Suspect]
     Active Substance: SUNITINIB MALATE
     Dosage: 25 MG, (EVERY DAY) CYCLIC
     Dates: end: 201509
  14. AMLODIPINE [Concomitant]
     Active Substance: AMLODIPINE BESYLATE
     Indication: BLOOD PRESSURE INCREASED
     Dosage: UNK
     Dates: start: 2015
  15. KAOPECTATE REGULAR STRENGTH CHERRY FLAVOR [Concomitant]
     Active Substance: BISMUTH SUBSALICYLATE
     Dosage: UNK
     Dates: start: 2000
  16. PROBIOTICS [Concomitant]
     Active Substance: PROBIOTICS NOS
     Dosage: UNK
  17. KLOR-CON [Concomitant]
     Active Substance: POTASSIUM CHLORIDE
     Indication: HYPOKALAEMIC SYNDROME
     Dosage: 20 MG, 1X/DAY
     Dates: start: 2000
  18. IMODIUM [Concomitant]
     Active Substance: LOPERAMIDE HYDROCHLORIDE
     Dosage: UNK
     Dates: start: 2010

REACTIONS (37)
  - Temporomandibular joint syndrome [Unknown]
  - Depression [Unknown]
  - Faeces discoloured [Unknown]
  - Anal sphincter atony [Unknown]
  - Arthritis [Unknown]
  - Urinary tract infection [Unknown]
  - Dyspnoea [Unknown]
  - Asthenia [Unknown]
  - Proctalgia [Unknown]
  - Erythema [Unknown]
  - Tongue disorder [Unknown]
  - Oral pain [Unknown]
  - Fatigue [Unknown]
  - Diarrhoea [Not Recovered/Not Resolved]
  - Anal fissure [Unknown]
  - Mouth ulceration [Unknown]
  - Weight decreased [Unknown]
  - Nausea [Unknown]
  - Rectal haemorrhage [Unknown]
  - Stomatitis [Unknown]
  - Chromaturia [Unknown]
  - Blood pressure increased [Unknown]
  - Glossodynia [Unknown]
  - Intestinal obstruction [Unknown]
  - Yellow skin [Unknown]
  - Mood altered [Unknown]
  - Oral discomfort [Unknown]
  - Product use issue [Unknown]
  - Condition aggravated [Unknown]
  - Flatulence [Unknown]
  - Oral mucosal blistering [Unknown]
  - Rectal polyp [Not Recovered/Not Resolved]
  - Dysgeusia [Unknown]
  - Dry mouth [Unknown]
  - Glossodynia [Not Recovered/Not Resolved]
  - Gait disturbance [Unknown]
  - Insomnia [Unknown]

NARRATIVE: CASE EVENT DATE: 2015
